FAERS Safety Report 9705540 (Version 1)
Quarter: 2013Q4

REPORT INFORMATION
  Report Type: Spontaneous
  Country: NL (occurrence: NL)
  Receive Date: 20131122
  Receipt Date: 20131122
  Transmission Date: 20140711
  Serious: Yes (Hospitalization, Other)
  Sender: FDA-Public Use
  Company Number: PHHY2013NL132685

PATIENT
  Sex: Male

DRUGS (7)
  1. GABAPENTIN [Suspect]
     Indication: DIABETIC FOOT
     Dosage: 300 MG, TID
  2. OMEPRAZOLE [Suspect]
     Dosage: 20 MG, QD
  3. INSULIN HUMAN [Interacting]
  4. INSULIN [Interacting]
  5. PREDNISOLONE [Concomitant]
  6. GRAMICIDIN W/NEOMYCIN SULFATE/POLYMYCIN B [Concomitant]
  7. ALFUZOSIN [Concomitant]

REACTIONS (5)
  - Coma [Recovered/Resolved]
  - Hypoglycaemia [Recovered/Resolved]
  - Tremor [Recovered/Resolved]
  - Loss of consciousness [Recovered/Resolved]
  - Drug interaction [Unknown]
